FAERS Safety Report 11249213 (Version 1)
Quarter: 2015Q3

REPORT INFORMATION
  Report Type: Spontaneous
  Country: US (occurrence: US)
  Receive Date: 20150708
  Receipt Date: 20150708
  Transmission Date: 20151125
  Serious: Yes (Other)
  Sender: FDA-Public Use
  Company Number: US-ELI_LILLY_AND_COMPANY-US200905003289

PATIENT
  Sex: Female

DRUGS (3)
  1. ALIMTA [Suspect]
     Active Substance: PEMETREXED DISODIUM
     Indication: NON-SMALL CELL LUNG CANCER
     Dosage: 500 MG/M2, UNK
     Route: 042
  2. FOLATE [Concomitant]
     Active Substance: FOLATE SODIUM
     Indication: PREMEDICATION
     Dosage: 400 UG, UNK
  3. VITAMIN B12 [Concomitant]
     Active Substance: CYANOCOBALAMIN
     Indication: PREMEDICATION
     Dosage: 1000 UG, UNK

REACTIONS (1)
  - Platelet count decreased [Recovering/Resolving]
